FAERS Safety Report 5930276-0 (Version None)
Quarter: 2008Q4

REPORT INFORMATION
  Report Type: 
  Country: None (occurrence: None)
  Receive Date: 20081024
  Receipt Date: 20081015
  Transmission Date: 20090506
  Serious: Yes (Other)
  Sender: FDA-Public Use
  Company Number: HR-PFIZER INC-2008088878

PATIENT
  Sex: Female

DRUGS (3)
  1. CADUET [Suspect]
     Indication: HYPERTENSION
     Dosage: TEXT:5MG/10MG
     Route: 048
     Dates: start: 20080930, end: 20081010
  2. CADUET [Suspect]
     Indication: HYPERLIPIDAEMIA
  3. CADUET [Suspect]
     Indication: HEPATIC STEATOSIS

REACTIONS (4)
  - ASTHENIA [None]
  - HAEMATOMA [None]
  - THROMBOCYTOPENIA [None]
  - VISION BLURRED [None]
